FAERS Safety Report 7407674-1 (Version None)
Quarter: 2011Q2

REPORT INFORMATION
  Report Type: 
  Country: None (occurrence: None)
  Receive Date: 20110412
  Receipt Date: 20101209
  Transmission Date: 20111010
  Serious: Yes (Other)
  Sender: FDA-Public Use
  Company Number: IT-BAYER-2010-003769

PATIENT
  Age: 32 Year
  Sex: Male

DRUGS (3)
  1. FORBEST [Concomitant]
     Indication: PRODUCT USED FOR UNKNOWN INDICATION
     Dosage: 1 MG/ML, QD
     Route: 055
  2. ACTIRA [Suspect]
     Indication: ACUTE SINUSITIS
     Dosage: 400 MG, QD
     Route: 048
     Dates: start: 20101202, end: 20101202
  3. MEDROL [Concomitant]
     Indication: PRODUCT USED FOR UNKNOWN INDICATION
     Dosage: 16 MG, QD
     Route: 048

REACTIONS (6)
  - ASTHENIA [None]
  - TREMOR [None]
  - DIARRHOEA [None]
  - DIZZINESS [None]
  - VOMITING [None]
  - ANXIETY [None]
